FAERS Safety Report 4433054-7 (Version None)
Quarter: 2004Q3

REPORT INFORMATION
  Report Type: 
  Country: None (occurrence: None)
  Receive Date: 20040721
  Receipt Date: 20030623
  Transmission Date: 20050211
  Serious: Yes (Other)
  Sender: FDA-Public Use
  Company Number: WAES 0306USA02625

PATIENT
  Age: 48 Year
  Sex: Female

DRUGS (6)
  1. VIOXX [Suspect]
     Dosage: PO
     Route: 048
     Dates: end: 20030314
  2. TAB REMIFEMIN [Suspect]
     Indication: MENOPAUSAL SYMPTOMS
     Dosage: BID/ PO
     Route: 048
     Dates: start: 20030209, end: 20030314
  3. ZOLOFT [Suspect]
     Dates: end: 20030304
  4. MULTIVITAMIN [Suspect]
     Dosage: PO
     Route: 048
     Dates: end: 20030314
  5. ASCORBIC ACID [Suspect]
     Dosage: PO
     Route: 048
  6. HERBS [Suspect]

REACTIONS (1)
  - ANGIONEUROTIC OEDEMA [None]
